FAERS Safety Report 5210455-0 (Version None)
Quarter: 2007Q1

REPORT INFORMATION
  Report Type: 
  Country: None (occurrence: None)
  Receive Date: 20070116
  Receipt Date: 20070116
  Transmission Date: 20070707
  Serious: No
  Sender: FDA-Public Use
  Company Number: None

PATIENT
  Age: 44 Year
  Sex: Male
  Weight: 90.7194 kg

DRUGS (2)
  1. ATOMOXETINE [Suspect]
     Indication: ATTENTION DEFICIT/HYPERACTIVITY DISORDER
     Dosage: 80 MG QD ORAL
     Route: 048
     Dates: start: 20061124, end: 20061130
  2. ATOMOXETINE [Suspect]
     Indication: ATTENTION DEFICIT/HYPERACTIVITY DISORDER
     Dosage: 100 MG QD ORAL
     Route: 048
     Dates: start: 20061204, end: 20061207

REACTIONS (2)
  - DRUG DEPENDENCE [None]
  - TREATMENT NONCOMPLIANCE [None]
